FAERS Safety Report 9292557 (Version 1)
Quarter: 2013Q2

REPORT INFORMATION
  Report Type: Spontaneous
  Country: US (occurrence: US)
  Receive Date: 20130516
  Receipt Date: 20130516
  Transmission Date: 20140414
  Serious: Yes (Death)
  Sender: FDA-Public Use
  Company Number: US-BAYER-2013-058882

PATIENT
  Age: 85 Year
  Sex: Female
  Weight: 56.69 kg

DRUGS (2)
  1. BAYER GENUINE ASPIRIN ORIGINAL STRENGTH [Suspect]
     Indication: FATIGUE
     Dosage: UNK, TOOK A COUPLE
     Route: 048
  2. BAYER GENUINE ASPIRIN ORIGINAL STRENGTH [Suspect]
     Indication: NERVOUSNESS

REACTIONS (2)
  - Death [Fatal]
  - Off label use [None]
